FAERS Safety Report 5404689-X (Version None)
Quarter: 2007Q3

REPORT INFORMATION
  Report Type: 
  Country: None (occurrence: None)
  Receive Date: 20070731
  Receipt Date: 20070720
  Transmission Date: 20080115
  Serious: Yes (Hospitalization)
  Sender: FDA-Public Use
  Company Number: 2007BI015253

PATIENT
  Age: 50 Year
  Sex: Male
  Weight: 90 kg

DRUGS (1)
  1. AVONEX [Suspect]
     Indication: MULTIPLE SCLEROSIS
     Dosage: 30 UG; QW; IM
     Route: 030
     Dates: start: 20070301

REACTIONS (3)
  - ANGINA PECTORIS [None]
  - BACK PAIN [None]
  - NECK PAIN [None]
